FAERS Safety Report 18180045 (Version 1)
Quarter: 2020Q3

REPORT INFORMATION
  Report Type: Spontaneous
  Country: US (occurrence: US)
  Receive Date: 20200821
  Receipt Date: 20200821
  Transmission Date: 20201103
  Serious: No
  Sender: FDA-Public Use
  Company Number: US-SA-2020SA217597

PATIENT

DRUGS (4)
  1. CALCIUM ACETATE. [Concomitant]
     Active Substance: CALCIUM ACETATE
  2. TACROLIMUS. [Concomitant]
     Active Substance: TACROLIMUS
  3. LEVOTHYROXINE. [Concomitant]
     Active Substance: LEVOTHYROXINE
  4. RENVELA [Suspect]
     Active Substance: SEVELAMER CARBONATE
     Dosage: 2DF (TWO PILLS WITH MEALS, ONE PILL WITH A SNACK, SO HAS ABOUT 6 PILLS MAX A DAY)

REACTIONS (9)
  - Impaired work ability [Unknown]
  - Abdominal pain [Unknown]
  - Head discomfort [Unknown]
  - Vomiting [Unknown]
  - Pruritus [Unknown]
  - Nausea [Unknown]
  - Feeling abnormal [Unknown]
  - Flatulence [Unknown]
  - Diarrhoea [Unknown]

NARRATIVE: CASE EVENT DATE: 20200814
